FAERS Safety Report 4405555-9 (Version None)
Quarter: 2004Q3

REPORT INFORMATION
  Report Type: 
  Country: None (occurrence: None)
  Receive Date: 20040723
  Receipt Date: 20030925
  Transmission Date: 20050211
  Serious: No
  Sender: FDA-Public Use
  Company Number: US-GLAXOSMITHKLINE-A0427910A

PATIENT
  Age: 51 Year
  Sex: Female
  Weight: 95.9 kg

DRUGS (6)
  1. AVANDIA [Suspect]
     Indication: DIABETES MELLITUS
     Dosage: 2MG TWICE PER DAY
     Route: 048
     Dates: start: 20030312, end: 20030428
  2. GLYBURIDE [Concomitant]
     Dosage: 10MG TWICE PER DAY
     Route: 048
  3. METOPROLOL TARTRATE [Concomitant]
  4. SYNTHROID [Concomitant]
     Dosage: 75MG PER DAY
     Route: 065
  5. ZOCOR [Concomitant]
     Dosage: 20MG PER DAY
     Route: 065
  6. HYDROCHLOROTHIAZIDE [Concomitant]
     Dosage: 20MG PER DAY
     Route: 065

REACTIONS (2)
  - BEDRIDDEN [None]
  - PAIN [None]
